FAERS Safety Report 10971993 (Version 1)
Quarter: 2015Q1

REPORT INFORMATION
  Report Type: Spontaneous
  Country: US (occurrence: US)
  Receive Date: 20150331
  Receipt Date: 20150331
  Transmission Date: 20150721
  Serious: Yes (Congenital Anomaly, Other)
  Sender: FDA-Public Use
  Company Number: US-ELI_LILLY_AND_COMPANY-US201503009513

PATIENT
  Sex: Female

DRUGS (1)
  1. PROZAC [Suspect]
     Active Substance: FLUOXETINE HYDROCHLORIDE
     Indication: PRODUCT USED FOR UNKNOWN INDICATION
     Route: 064

REACTIONS (6)
  - Neonatal respiratory distress syndrome [Recovered/Resolved]
  - Meconium in amniotic fluid [Unknown]
  - Foetal exposure during pregnancy [Recovered/Resolved]
  - Congenital aortic valve stenosis [Unknown]
  - Ventricular septal defect [Unknown]
  - Patent ductus arteriosus [Recovered/Resolved]
